FAERS Safety Report 7500373-7 (Version None)
Quarter: 2011Q2

REPORT INFORMATION
  Report Type: 
  Country: None (occurrence: None)
  Receive Date: 20110524
  Receipt Date: 20110502
  Transmission Date: 20111010
  Serious: Yes (Hospitalization, Other)
  Sender: FDA-Public Use
  Company Number: US-BAYER-201038012NA

PATIENT
  Age: 21 Year
  Sex: Female
  Weight: 86.168 kg

DRUGS (7)
  1. ATENOLOL [Concomitant]
     Indication: HYPERTENSION
     Dosage: 50 MG, TABLETS
     Dates: end: 20060107
  2. BUTALBITAL ACETAMINOPHEN AND CAFFEINE [Concomitant]
  3. YASMIN [Suspect]
     Dosage: UNK
     Dates: start: 20030101, end: 20060101
  4. NIFEDIPINE [Concomitant]
  5. IBUPROFEN [Concomitant]
     Dosage: 800 MG, UNK
  6. HYDROCHLOROTHIAZIDE [Concomitant]
     Indication: DIURETIC THERAPY
     Dosage: 50 MG, TABLETS
     Dates: end: 20060107
  7. PENICILLIN VK [Concomitant]
     Dosage: 500 MG, UNK

REACTIONS (5)
  - MALIGNANT SPLENIC NEOPLASM [None]
  - PHAEOCHROMOCYTOMA [None]
  - PANCREATIC NEOPLASM [None]
  - DIABETES MELLITUS [None]
  - GASTROINTESTINAL NEOPLASM [None]
